FAERS Safety Report 14088631 (Version 1)
Quarter: 2017Q4

REPORT INFORMATION
  Report Type: Spontaneous
  Country: GB (occurrence: GB)
  Receive Date: 20171013
  Receipt Date: 20171013
  Transmission Date: 20180321
  Serious: Yes (Other)
  Sender: FDA-Public Use
  Company Number: GB-TEVA-813990ACC

PATIENT
  Age: 59 Year
  Sex: Female
  Weight: 73.02 kg

DRUGS (7)
  1. CO-AMOXICLAV [Suspect]
     Active Substance: AMOXICILLIN\CLAVULANIC ACID
     Indication: ACUTE SINUSITIS
     Route: 051
     Dates: start: 20170811, end: 20170812
  2. RANITIDINE. [Concomitant]
     Active Substance: RANITIDINE
  3. MORPHINE [Concomitant]
     Active Substance: MORPHINE
  4. IMIGRAN [Concomitant]
     Active Substance: SUMATRIPTAN SUCCINATE
  5. LEVOTHYROXINE. [Concomitant]
     Active Substance: LEVOTHYROXINE
  6. AMITRIPTYLINE [Concomitant]
     Active Substance: AMITRIPTYLINE
  7. PARACETAMOL [Concomitant]
     Active Substance: ACETAMINOPHEN

REACTIONS (9)
  - Malaise [Unknown]
  - Parosmia [Unknown]
  - Burning sensation [Recovered/Resolved with Sequelae]
  - Documented hypersensitivity to administered product [Unknown]
  - Epistaxis [Recovered/Resolved with Sequelae]
  - Dysgeusia [Unknown]
  - Nasal discomfort [Recovered/Resolved with Sequelae]
  - Eye irritation [Recovered/Resolved with Sequelae]
  - Sinus pain [Recovered/Resolved with Sequelae]

NARRATIVE: CASE EVENT DATE: 20170811
